FAERS Safety Report 7232709-9 (Version None)
Quarter: 2011Q1

REPORT INFORMATION
  Report Type: 
  Country: None (occurrence: None)
  Receive Date: 20110106
  Receipt Date: 20101222
  Transmission Date: 20110831
  Serious: Yes (Hospitalization)
  Sender: FDA-Public Use
  Company Number: 2010AM003186

PATIENT
  Age: 56 Year
  Sex: Female
  Weight: 158.759 kg

DRUGS (12)
  1. SYNTHROID [Concomitant]
  2. MSIR [Concomitant]
  3. SYMLIN [Suspect]
     Indication: TYPE 2 DIABETES MELLITUS
     Dosage: 60 MCG; TID; SC
     Route: 058
     Dates: start: 20100907
  4. SYMLIN [Suspect]
     Indication: TYPE 2 DIABETES MELLITUS
     Dosage: TID; SC
     Route: 058
  5. ATROVENT [Concomitant]
  6. METFORMIN [Concomitant]
  7. NEURONTIN [Concomitant]
  8. LANTUS [Concomitant]
  9. GLIPIZIDE [Concomitant]
  10. RISPERDAL [Concomitant]
  11. HUMALOG [Concomitant]
  12. ALBUTEROL [Concomitant]

REACTIONS (19)
  - BRONCHITIS [None]
  - DIABETES MELLITUS INADEQUATE CONTROL [None]
  - SOMNOLENCE [None]
  - WEIGHT INCREASED [None]
  - TREMOR [None]
  - PNEUMONIA [None]
  - EAR INFECTION [None]
  - BLOOD GLUCOSE DECREASED [None]
  - HYPERHIDROSIS [None]
  - DISORIENTATION [None]
  - CHRONIC OBSTRUCTIVE PULMONARY DISEASE [None]
  - CRYING [None]
  - THINKING ABNORMAL [None]
  - RESPIRATORY DISTRESS [None]
  - PULMONARY THROMBOSIS [None]
  - URINARY TRACT INFECTION [None]
  - BLOOD GLUCOSE INCREASED [None]
  - IRRITABILITY [None]
  - CHRONIC RESPIRATORY FAILURE [None]
